FAERS Safety Report 21623430 (Version 1)
Quarter: 2022Q4

REPORT INFORMATION
  Report Type: Spontaneous
  Country: US (occurrence: US)
  Receive Date: 20221121
  Receipt Date: 20221121
  Transmission Date: 20230113
  Serious: No
  Sender: FDA-Public Use
  Company Number: US-JNJFOC-20221129909

PATIENT
  Age: 5 Decade
  Sex: Female

DRUGS (1)
  1. CONCERTA [Suspect]
     Active Substance: METHYLPHENIDATE HYDROCHLORIDE
     Indication: Product used for unknown indication
     Dosage: TAKEN CONCERTA AT THE LOWEST DOSE WITHOUT ANY NOTABLE SIDE EFFECTS.
     Route: 048
     Dates: start: 2012, end: 2014

REACTIONS (1)
  - Therapeutic product effect decreased [Unknown]
